FAERS Safety Report 8303149-6 (Version None)
Quarter: 2012Q2

REPORT INFORMATION
  Report Type: 
  Country: None (occurrence: None)
  Receive Date: 20120423
  Receipt Date: 20120413
  Transmission Date: 20120825
  Serious: Yes (Hospitalization)
  Sender: FDA-Public Use
  Company Number: US-BIOGENIDEC-2011BI045400

PATIENT
  Age: 48 Year
  Sex: Female

DRUGS (3)
  1. AVONEX [Suspect]
     Indication: MULTIPLE SCLEROSIS
     Route: 030
     Dates: start: 19990701
  2. AVONEX [Suspect]
     Route: 030
     Dates: start: 20120329
  3. AVONEX [Suspect]
     Route: 030
     Dates: start: 20091130, end: 20110930

REACTIONS (6)
  - INFLUENZA LIKE ILLNESS [None]
  - HYPOTHYROIDISM [None]
  - STRESS [None]
  - AORTIC VALVE REPLACEMENT [None]
  - DYSPNOEA [None]
  - COGNITIVE DISORDER [None]
